FAERS Safety Report 6573766-2 (Version None)
Quarter: 2010Q1

REPORT INFORMATION
  Report Type: 
  Country: None (occurrence: None)
  Receive Date: 20100208
  Receipt Date: 20100202
  Transmission Date: 20100710
  Serious: Yes (Hospitalization)
  Sender: FDA-Public Use
  Company Number: B0631715A

PATIENT
  Sex: Male

DRUGS (3)
  1. VENTOLIN [Suspect]
     Indication: DRUG USE FOR UNKNOWN INDICATION
     Dosage: 20MG PER DAY
     Route: 048
     Dates: start: 20091025, end: 20091025
  2. PULMICORT [Concomitant]
  3. AIROMIR [Concomitant]

REACTIONS (4)
  - ACCIDENTAL EXPOSURE [None]
  - HYPERGLYCAEMIA [None]
  - HYPOKALAEMIA [None]
  - VOMITING [None]
